FAERS Safety Report 10377616 (Version 1)
Quarter: 2014Q1

REPORT INFORMATION
  Report Type: Spontaneous
  Country: US (occurrence: None)
  Receive Date: 20140306
  Receipt Date: 20140306
  Transmission Date: 20141002
  Serious: Yes (Hospitalization)
  Sender: FDA-Public Use
  Company Number: 163-21880-13033766

PATIENT
  Age: 73 Year
  Sex: Female

DRUGS (18)
  1. REVLIMID (LENALIDOMIDE) (CAPSULES) [Suspect]
     Indication: PLASMA CELL MYELOMA
     Dosage: 25 MG, 21 IN 28 D, PO
     Route: 048
     Dates: start: 20110302
  2. ASOIRINE (ACETYLSALICYLIC ACID) (ENTERIC-COATED TABLET) [Concomitant]
  3. B COMPLEX (BECOSYM FORTE) [Concomitant]
  4. CALCIUM CITRATE-VITAMIN D (CALCIUM CITRATE W/COLECALCIFEROL) (TABLETS) [Concomitant]
  5. CITALOPRAM (CITALOPRAM) (TABLETS) [Concomitant]
  6. DONNATAL (DONNATAL) (TABLETS) [Concomitant]
  7. GABAPENTIN (GABAPENTIN) (CAPSULES) [Concomitant]
  8. MAGNESIUM OXIDE (MAGNESIUM OXIDE) (CHEWABLE TABLET) [Concomitant]
  9. MVI (MVI) (TABLETS) [Concomitant]
  10. OMEPRAZOLE (OMEPRAZOLE) (ENTERIC-COATED TABLET) [Concomitant]
  11. OXYCODONE HCL (OXYCODONE HYDROCHLORIDE) (TABLETS) [Concomitant]
  12. OXYCONTIN (OXYCODONE HYDROCHLORIDE) (ENTERIC-COATED TABLET) [Concomitant]
  13. PREMPO (PROVELLA-14) (TABLETS) [Concomitant]
  14. SYNTHROID (LEVOTHYROXINE SODIUM) (TABLETS) [Concomitant]
  15. TRAMADOL HCL (TRAMADOL HYDROCHLORIDE) (TABLETS) [Concomitant]
  16. VITAMIN B6 (PYRIDOXINE HYDROCHLORIDE) (TABLETS) [Concomitant]
  17. VITAMIN D (ERGOCALCIFEROL) (TABLETS) [Concomitant]
  18. DEXAMETHASONE (DEXAMETHASONE) [Concomitant]

REACTIONS (1)
  - Deep vein thrombosis [None]
